FAERS Safety Report 24562262 (Version 1)
Quarter: 2024Q4

REPORT INFORMATION
  Report Type: Spontaneous
  Country: US (occurrence: US)
  Receive Date: 20241029
  Receipt Date: 20241029
  Transmission Date: 20250115
  Serious: Yes (Life-Threatening, Other)
  Sender: PFIZER
  Company Number: US-PFIZER INC-202400284449

PATIENT
  Age: 6 Decade
  Sex: Male

DRUGS (1)
  1. FILGRASTIM [Suspect]
     Active Substance: FILGRASTIM
     Indication: Rosai-Dorfman syndrome
     Dosage: UNK

REACTIONS (2)
  - Drug ineffective [Unknown]
  - Histoplasmosis disseminated [Unknown]
